FAERS Safety Report 23673422 (Version 2)
Quarter: 2024Q2

REPORT INFORMATION
  Report Type: Spontaneous
  Country: US (occurrence: US)
  Receive Date: 20240326
  Receipt Date: 20240405
  Transmission Date: 20240716
  Serious: No
  Sender: FDA-Public Use
  Company Number: US-AMGEN-USASP2024060036

PATIENT
  Age: 75 Year
  Sex: Female

DRUGS (2)
  1. AIMOVIG [Suspect]
     Active Substance: ERENUMAB-AOOE
     Indication: Ophthalmic migraine
     Dosage: 70 MILLIGRAM, QMO (UNSUCCESSFUL ATTEMPT)
     Route: 058
     Dates: start: 202401
  2. AIMOVIG [Suspect]
     Active Substance: ERENUMAB-AOOE
     Dosage: 70 MILLIGRAM, QMO
     Route: 058
     Dates: start: 20240215, end: 20240215

REACTIONS (3)
  - Alopecia [Not Recovered/Not Resolved]
  - Skin burning sensation [Recovering/Resolving]
  - Wrong technique in product usage process [Unknown]

NARRATIVE: CASE EVENT DATE: 20240101
